FAERS Safety Report 15356978 (Version 1)
Quarter: 2018Q3

REPORT INFORMATION
  Report Type: Spontaneous
  Country: US (occurrence: US)
  Receive Date: 20180906
  Receipt Date: 20180906
  Transmission Date: 20181010
  Serious: Yes (Hospitalization, Other)
  Sender: FDA-Public Use
  Company Number: US-GLAXOSMITHKLINE-US2018GSK160185

PATIENT
  Sex: Female

DRUGS (2)
  1. RYTHMOL SR [Suspect]
     Active Substance: PROPAFENONE HYDROCHLORIDE
     Indication: ARRHYTHMIA
     Dosage: 325 MG, UNK
     Dates: start: 201802
  2. ADVAIR DISKUS [Suspect]
     Active Substance: FLUTICASONE PROPIONATE\SALMETEROL XINAFOATE
     Indication: CHRONIC OBSTRUCTIVE PULMONARY DISEASE
     Dosage: UNK
     Dates: start: 201802

REACTIONS (2)
  - Atrial fibrillation [Unknown]
  - Cardiac failure congestive [Unknown]
